FAERS Safety Report 11792267 (Version 1)
Quarter: 2015Q4

REPORT INFORMATION
  Report Type: Spontaneous
  Country: US (occurrence: US)
  Receive Date: 20151201
  Receipt Date: 20151201
  Transmission Date: 20160305
  Serious: No
  Sender: FDA-Public Use
  Company Number: US-TEVA-610569USA

PATIENT
  Sex: Female

DRUGS (1)
  1. COPAXONE [Suspect]
     Active Substance: GLATIRAMER ACETATE
     Indication: MULTIPLE SCLEROSIS
     Route: 058
     Dates: start: 20151031

REACTIONS (4)
  - Influenza [Unknown]
  - Abdominal discomfort [Unknown]
  - Migraine [Unknown]
  - Photophobia [Unknown]

NARRATIVE: CASE EVENT DATE: 2015
